FAERS Safety Report 7471517-0 (Version None)
Quarter: 2011Q2

REPORT INFORMATION
  Report Type: 
  Country: None (occurrence: None)
  Receive Date: 20110511
  Receipt Date: 20110504
  Transmission Date: 20111010
  Serious: No
  Sender: FDA-Public Use
  Company Number: US-BIOGENIDEC-2011BI016922

PATIENT
  Age: 62 Year
  Sex: Female

DRUGS (14)
  1. PRAVASTATIN [Concomitant]
     Indication: BLOOD CHOLESTEROL INCREASED
  2. PRAMIPEXOLE DIHYDROCHLORIDE [Concomitant]
     Indication: RESTLESS LEGS SYNDROME
  3. SERTRALINE HYDROCHLORIDE [Concomitant]
     Indication: DEPRESSION
  4. PANTOPRAZOLE [Concomitant]
     Indication: GASTROOESOPHAGEAL REFLUX DISEASE
  5. AVONEX [Suspect]
     Indication: MULTIPLE SCLEROSIS
     Route: 030
     Dates: start: 20110427
  6. SYMBICORT [Concomitant]
     Indication: ASTHMA
  7. EYE DROPS [Concomitant]
     Indication: DRY EYE
  8. FUROSEMIDE [Concomitant]
     Indication: HYPERTENSION
  9. FLUTICASONE PROPIONATE [Concomitant]
     Indication: SINUS DISORDER
  10. PROAIR HFA [Concomitant]
     Indication: ASTHMA
  11. POTASSIUM [Concomitant]
     Indication: LABORATORY TEST ABNORMAL
     Route: 048
  12. TRAZODONE HCL [Concomitant]
     Indication: PAIN
  13. ASPIRIN [Concomitant]
     Indication: PRODUCT USED FOR UNKNOWN INDICATION
  14. VIT D [Concomitant]
     Indication: VITAMIN D DECREASED

REACTIONS (4)
  - INFLUENZA LIKE ILLNESS [None]
  - MUSCULOSKELETAL PAIN [None]
  - MUSCLE SPASMS [None]
  - BACK PAIN [None]
